FAERS Safety Report 4602352-6 (Version None)
Quarter: 2005Q2

REPORT INFORMATION
  Report Type: 
  Country: None (occurrence: None)
  Receive Date: 20050223
  Receipt Date: 20041101
  Transmission Date: 20051028
  Serious: No
  Sender: FDA-Public Use
  Company Number: PHEH2004US10027

PATIENT
  Age: 74 Year
  Sex: Female
  Weight: 60.8 kg

DRUGS (8)
  1. ZELNORM [Suspect]
     Indication: IRRITABLE BOWEL SYNDROME
     Dosage: 6 MG, QD, ORAL
     Route: 048
     Dates: start: 20040909, end: 20040917
  2. ZELNORM [Suspect]
     Indication: IRRITABLE BOWEL SYNDROME
     Dosage: 6 MG, QD, ORAL
     Route: 048
     Dates: start: 20040916
  3. SINEMET [Concomitant]
  4. NEURONTIN [Concomitant]
  5. LEXAPRO [Concomitant]
  6. LORAZEPAM [Concomitant]
  7. ACTONEL [Concomitant]
  8. ELAVIL [Concomitant]

REACTIONS (4)
  - ABDOMINAL PAIN [None]
  - BURNING SENSATION [None]
  - DRUG INEFFECTIVE [None]
  - PARAESTHESIA [None]
